FAERS Safety Report 21260131 (Version 1)
Quarter: 2022Q3

REPORT INFORMATION
  Report Type: Spontaneous
  Country: US (occurrence: None)
  Receive Date: 20220824
  Receipt Date: 20220824
  Transmission Date: 20221027
  Serious: Yes (Death, Hospitalization)
  Sender: FDA-Public Use
  Company Number: None

PATIENT
  Age: 54 Year
  Sex: Male
  Weight: 75 kg

DRUGS (7)
  1. TRIAMCINOLONE ACETONIDE [Suspect]
     Active Substance: TRIAMCINOLONE ACETONIDE
     Indication: Arthritis
     Dosage: FREQUENCY : ONCE;?
     Route: 014
     Dates: start: 20220610, end: 20220610
  2. XYLOCAINE-MPF [Suspect]
     Active Substance: LIDOCAINE HYDROCHLORIDE
     Indication: Arthritis
     Dosage: OTHER FREQUENCY : ONCE;?
     Route: 014
     Dates: start: 20220610, end: 20220610
  3. ATORVASTATIN [Concomitant]
     Active Substance: ATORVASTATIN
  4. ELIQUIS [Concomitant]
     Active Substance: APIXABAN
  5. LISINOPRIL [Concomitant]
     Active Substance: LISINOPRIL
  6. METFORMIN [Concomitant]
     Active Substance: METFORMIN HYDROCHLORIDE
  7. SOTALOL [Concomitant]
     Active Substance: SOTALOL

REACTIONS (4)
  - Atrial fibrillation [None]
  - Hypersensitivity [None]
  - Lactic acidosis [None]
  - Bradycardia [None]

NARRATIVE: CASE EVENT DATE: 20220610
